FAERS Safety Report 12983034 (Version 1)
Quarter: 2016Q4

REPORT INFORMATION
  Report Type: Spontaneous
  Country: US (occurrence: US)
  Receive Date: 20161129
  Receipt Date: 20161129
  Transmission Date: 20170207
  Serious: No
  Sender: FDA-Public Use
  Company Number: US-MALLINCKRODT-T201601510

PATIENT
  Age: 46 Year
  Sex: Male
  Weight: 145 kg

DRUGS (2)
  1. FENTANYL TRANSDERMAL SYSTEM [Suspect]
     Active Substance: FENTANYL
     Dosage: 25 MCG/HR PATCH; CHANGE EVERY 72 HOURS
     Route: 062
     Dates: start: 20160411
  2. FENTANYL TRANSDERMAL SYSTEM [Suspect]
     Active Substance: FENTANYL
     Indication: PAIN
     Dosage: 12 MCG/HR PATCH, CHANGE EVERY 72 HOURS
     Route: 062
     Dates: start: 201603

REACTIONS (7)
  - Dizziness [Unknown]
  - Wrong technique in product usage process [Unknown]
  - Product adhesion issue [Unknown]
  - Retching [Unknown]
  - Thermal burn [Unknown]
  - Hyperhidrosis [Unknown]
  - Product physical issue [Unknown]

NARRATIVE: CASE EVENT DATE: 20160412
